FAERS Safety Report 18735721 (Version 1)
Quarter: 2021Q1

REPORT INFORMATION
  Report Type: Spontaneous
  Country: US (occurrence: US)
  Receive Date: 20210113
  Receipt Date: 20210113
  Transmission Date: 20210419
  Serious: Yes (Other)
  Sender: FDA-Public Use
  Company Number: US-MYLANLABS-2021M1001645

PATIENT
  Age: 82 Year
  Sex: Male

DRUGS (3)
  1. LEUPROLIDE                         /00726901/ [Concomitant]
     Active Substance: LEUPROLIDE
     Indication: PROSTATE CANCER
     Route: 065
  2. ABIRATERONE. [Suspect]
     Active Substance: ABIRATERONE ACETATE
     Indication: PROSTATE CANCER METASTATIC
     Route: 065
  3. PREDNISONE. [Concomitant]
     Active Substance: PREDNISONE
     Indication: PROSTATE CANCER
     Route: 065

REACTIONS (6)
  - Acquired apparent mineralocorticoid excess [Unknown]
  - Delirium [Unknown]
  - Metabolic alkalosis [Unknown]
  - Asthenia [Unknown]
  - Hypokalaemia [Unknown]
  - Hypertension [Unknown]
